FAERS Safety Report 8362873-X (Version None)
Quarter: 2012Q2

REPORT INFORMATION
  Report Type: 
  Country: None (occurrence: None)
  Receive Date: 20120514
  Receipt Date: 20120503
  Transmission Date: 20120825
  Serious: Yes (Other)
  Sender: FDA-Public Use
  Company Number: 2012MA005706

PATIENT
  Age: 46 Year
  Sex: Female

DRUGS (1)
  1. M-ZOLE 3 COMBINATION PACK [Suspect]
     Indication: FUNGAL INFECTION
     Dosage: HS;VAG
     Route: 067
     Dates: start: 20120502, end: 20120502

REACTIONS (4)
  - PRURITUS [None]
  - BURNING SENSATION [None]
  - HYPERSENSITIVITY [None]
  - RASH GENERALISED [None]
